FAERS Safety Report 10313199 (Version 1)
Quarter: 2014Q3

REPORT INFORMATION
  Report Type: Spontaneous
  Country: US (occurrence: None)
  Receive Date: 20140717
  Receipt Date: 20140717
  Transmission Date: 20150326
  Serious: No
  Sender: FDA-Public Use
  Company Number: None

PATIENT
  Age: 39 Year
  Sex: Male
  Weight: 97.52 kg

DRUGS (2)
  1. ALLOPURINOL. [Suspect]
     Active Substance: ALLOPURINOL
     Indication: BLOOD URIC ACID INCREASED
     Route: 048
     Dates: start: 20140617, end: 20140617
  2. ALLOPURINOL. [Suspect]
     Active Substance: ALLOPURINOL
     Indication: GOUT
     Route: 048
     Dates: start: 20140617, end: 20140617

REACTIONS (11)
  - Lip haemorrhage [None]
  - Oral herpes [None]
  - Chapped lips [None]
  - Lip swelling [None]
  - Hypoaesthesia oral [None]
  - Lip blister [None]
  - Depression [None]
  - Lip exfoliation [None]
  - Paraesthesia oral [None]
  - No therapeutic response [None]
  - Drug hypersensitivity [None]

NARRATIVE: CASE EVENT DATE: 20140618
